FAERS Safety Report 4765517-9 (Version None)
Quarter: 2005Q3

REPORT INFORMATION
  Report Type: 
  Country: None (occurrence: None)
  Receive Date: 20050906
  Receipt Date: 20050823
  Transmission Date: 20060218
  Serious: No
  Sender: FDA-Public Use
  Company Number: 05H-087-0302245-00

PATIENT
  Age: 55 Year
  Sex: Male

DRUGS (4)
  1. PRECEDEX [Suspect]
     Indication: SEDATIVE THERAPY
     Dosage: 0.43-0.71 MCG/KG/HR, INTRAVENOUS
     Route: 042
     Dates: start: 20050613, end: 20050614
  2. FENTANYL CITRATE [Concomitant]
  3. PROPOFOL [Concomitant]
  4. DIAZEPAM [Concomitant]

REACTIONS (1)
  - HEPATIC FUNCTION ABNORMAL [None]
